FAERS Safety Report 25592776 (Version 2)
Quarter: 2025Q3

REPORT INFORMATION
  Report Type: Spontaneous
  Country: US (occurrence: US)
  Receive Date: 20250722
  Receipt Date: 20250819
  Transmission Date: 20251020
  Serious: No
  Sender: SANOFI AVENTIS
  Company Number: US-SA-2025SA208852

PATIENT
  Age: 70 Year
  Sex: Female

DRUGS (11)
  1. KEVZARA [Suspect]
     Active Substance: SARILUMAB
     Indication: Illness
     Dosage: 200 MG, QOW
     Route: 058
  2. HYDROCHLOROTHIAZIDE\VALSARTAN [Concomitant]
     Active Substance: HYDROCHLOROTHIAZIDE\VALSARTAN
  3. CYCLOSPORINE [Concomitant]
     Active Substance: CYCLOSPORINE
  4. NITROFURANTOIN [Concomitant]
     Active Substance: NITROFURANTOIN
  5. TYLENOL [Concomitant]
     Active Substance: ACETAMINOPHEN
  6. REFRESH LIQUIGEL [Concomitant]
     Active Substance: CARBOXYMETHYLCELLULOSE SODIUM
  7. MINERALS\VITAMINS [Concomitant]
     Active Substance: MINERALS\VITAMINS
  8. VITAMINS [Concomitant]
     Active Substance: VITAMINS
  9. DEMANNOSE [Concomitant]
     Active Substance: DEMANNOSE
  10. CALCIUM [Concomitant]
     Active Substance: CALCIUM
  11. ATENOLOL [Concomitant]
     Active Substance: ATENOLOL

REACTIONS (7)
  - Pain [Unknown]
  - Pain in jaw [Recovering/Resolving]
  - Injection site erythema [Unknown]
  - Injection site swelling [Unknown]
  - Injection site warmth [Unknown]
  - Product use in unapproved indication [Unknown]
  - Lack of injection site rotation [Unknown]

NARRATIVE: CASE EVENT DATE: 20250808
